FAERS Safety Report 9016691 (Version 1)
Quarter: 2013Q1

REPORT INFORMATION
  Report Type: Spontaneous
  Country: US (occurrence: US)
  Receive Date: 20130116
  Receipt Date: 20130116
  Transmission Date: 20140127
  Serious: No
  Sender: FDA-Public Use
  Company Number: US-PFIZER INC-2013018194

PATIENT
  Sex: 0

DRUGS (3)
  1. NEURONTIN [Suspect]
     Dosage: UNK, 1 CAPSULE A DAY
  2. EFEXOR XR [Concomitant]
     Dosage: UNK
  3. LYRICA [Concomitant]
     Dosage: UNK

REACTIONS (3)
  - Headache [Unknown]
  - Back pain [Unknown]
  - Diarrhoea [Unknown]
